FAERS Safety Report 16521468 (Version 2)
Quarter: 2019Q3

REPORT INFORMATION
  Report Type: Spontaneous
  Country: US (occurrence: US)
  Receive Date: 20190703
  Receipt Date: 20190711
  Transmission Date: 20191004
  Serious: Yes (Other)
  Sender: FDA-Public Use
  Company Number: US-PFIZER INC-2019283910

PATIENT
  Sex: Female

DRUGS (9)
  1. AMIODARONE HCL [Suspect]
     Active Substance: AMIODARONE HYDROCHLORIDE
     Dosage: UNK
     Route: 065
  2. LYRICA [Suspect]
     Active Substance: PREGABALIN
     Indication: FIBROMYALGIA
  3. LYRICA [Suspect]
     Active Substance: PREGABALIN
     Indication: NEURALGIA
     Dosage: 150 MG, TID
     Route: 048
     Dates: start: 20190613
  4. SPIRONOLACTONE. [Suspect]
     Active Substance: SPIRONOLACTONE
     Indication: CARDIAC FAILURE
     Dosage: 12.5 MG, QD
     Route: 065
  5. LOSARTAN POTASSIUM. [Suspect]
     Active Substance: LOSARTAN POTASSIUM
     Dosage: UNK
     Route: 065
  6. REQUIP [Suspect]
     Active Substance: ROPINIROLE HYDROCHLORIDE
     Dosage: UNK
  7. PRIMIDONE. [Suspect]
     Active Substance: PRIMIDONE
     Dosage: UNK
     Route: 065
  8. MIRAPEX [Suspect]
     Active Substance: PRAMIPEXOLE DIHYDROCHLORIDE
     Dosage: UNK
     Route: 065
  9. SULFA [SULFANILAMIDE] [Suspect]
     Active Substance: SULFANILAMIDE
     Dosage: UNK

REACTIONS (8)
  - Loss of consciousness [Unknown]
  - Rash [Unknown]
  - Syncope [Unknown]
  - Angioedema [Unknown]
  - Stress cardiomyopathy [Unknown]
  - Diarrhoea [Unknown]
  - Feeling drunk [Unknown]
  - Drug hypersensitivity [Unknown]
